FAERS Safety Report 7183224-2 (Version None)
Quarter: 2010Q4

REPORT INFORMATION
  Report Type: 
  Country: None (occurrence: None)
  Receive Date: 20101222
  Receipt Date: 20100210
  Transmission Date: 20110411
  Serious: No
  Sender: FDA-Public Use
  Company Number: A0843894A

PATIENT
  Age: 53 Year
  Sex: Female

DRUGS (11)
  1. FLONASE [Suspect]
     Dosage: 2SPR PER DAY
     Route: 045
     Dates: start: 20090201, end: 20090101
  2. GABAPENTIN [Concomitant]
  3. DARVOCET [Concomitant]
  4. FLEXERIL [Concomitant]
  5. SYNTHROID [Concomitant]
  6. TOPROL-XL [Concomitant]
  7. FAMOTIDINE [Concomitant]
  8. MECLIZINE [Concomitant]
  9. ASPIRIN [Concomitant]
  10. SERTRALINE HYDROCHLORIDE [Concomitant]
  11. ALBUTEROL [Concomitant]

REACTIONS (4)
  - BONE PAIN [None]
  - DYSPNOEA [None]
  - LOCAL SWELLING [None]
  - NASAL CONGESTION [None]
